FAERS Safety Report 22651755 (Version 1)
Quarter: 2023Q2

REPORT INFORMATION
  Report Type: Spontaneous
  Country: US (occurrence: US)
  Receive Date: 20230628
  Receipt Date: 20230628
  Transmission Date: 20230721
  Serious: No
  Sender: FDA-Public Use
  Company Number: US-CTI BIOPHARMA-2023US03575

PATIENT
  Age: 72 Year
  Sex: Male
  Weight: 80.585 kg

DRUGS (7)
  1. VONJO [Suspect]
     Active Substance: PACRITINIB
     Indication: Myelofibrosis
     Dosage: 100 MG, BID
     Route: 048
     Dates: start: 20230302
  2. DYAZIDE [Concomitant]
     Active Substance: HYDROCHLOROTHIAZIDE\TRIAMTERENE
  3. FIORICET WITH CODEINE [Concomitant]
     Active Substance: ACETAMINOPHEN\BUTALBITAL\CAFFEINE\CODEINE PHOSPHATE
  4. UROCIT-K [Concomitant]
     Active Substance: POTASSIUM CITRATE
  5. RAPAFLO [Concomitant]
     Active Substance: SILODOSIN
  6. GEMTESA [Concomitant]
     Active Substance: VIBEGRON
  7. ALLOPURINOL [Concomitant]
     Active Substance: ALLOPURINOL

REACTIONS (8)
  - White blood cell count decreased [Unknown]
  - Bronchitis [Unknown]
  - Fatigue [Unknown]
  - Depression [Unknown]
  - Feeling of despair [Unknown]
  - Haemoglobin decreased [Unknown]
  - Pyrexia [Unknown]
  - Red blood cell count decreased [Unknown]
